FAERS Safety Report 16956968 (Version 1)
Quarter: 2019Q4

REPORT INFORMATION
  Report Type: Spontaneous
  Country: US (occurrence: US)
  Receive Date: 20190905
  Receipt Date: 20190905
  Transmission Date: 20200122
  Serious: Yes (Disabling)
  Sender: FDA-Public Use
  Company Number: None

PATIENT
  Age: 58 Year
  Sex: Female
  Weight: 49.9 kg

DRUGS (9)
  1. SPIRONOLACTON-E [Concomitant]
  2. VITAMIN B12 [Concomitant]
     Active Substance: CYANOCOBALAMIN
  3. PANTOPRAZOLE SOD DR 40MG TAB [Suspect]
     Active Substance: PANTOPRAZOLE SODIUM
     Indication: ABDOMINAL DISCOMFORT
     Route: 048
     Dates: start: 201809, end: 20190815
  4. PANTOPRAZOLE [Concomitant]
     Active Substance: PANTOPRAZOLE
  5. MULTIVITAMIN [Concomitant]
     Active Substance: VITAMINS
  6. BIOTIN [Concomitant]
     Active Substance: BIOTIN
  7. PANTOPRAZOLE SOD DR 40MG TAB [Suspect]
     Active Substance: PANTOPRAZOLE SODIUM
     Indication: GASTROOESOPHAGEAL REFLUX DISEASE
     Route: 048
     Dates: start: 201809, end: 20190815
  8. FOLIC ACID. [Concomitant]
     Active Substance: FOLIC ACID
  9. VITAMIN D3 [Concomitant]
     Active Substance: CHOLECALCIFEROL

REACTIONS (13)
  - Muscle spasms [None]
  - Arthralgia [None]
  - Systemic lupus erythematosus [None]
  - Pallor [None]
  - Hypoaesthesia [None]
  - Dizziness [None]
  - Fatigue [None]
  - Dysphonia [None]
  - Spinal pain [None]
  - Nausea [None]
  - Weight decreased [None]
  - Paraesthesia [None]
  - Alopecia [None]
